FAERS Safety Report 13553377 (Version 1)
Quarter: 2017Q2

REPORT INFORMATION
  Report Type: Spontaneous
  Country: US (occurrence: US)
  Receive Date: 20170517
  Receipt Date: 20170517
  Transmission Date: 20170830
  Serious: No
  Sender: FDA-Public Use
  Company Number: US-AMGEN-USASP2017071653

PATIENT
  Age: 65 Year
  Sex: Female

DRUGS (2)
  1. ENBREL [Suspect]
     Active Substance: ETANERCEPT
     Indication: PSORIATIC ARTHROPATHY
     Dosage: 50 MG, QWK
     Route: 065
     Dates: start: 2017
  2. ENBREL [Suspect]
     Active Substance: ETANERCEPT
     Indication: SYSTEMIC LUPUS ERYTHEMATOSUS

REACTIONS (14)
  - Hypoaesthesia [Unknown]
  - Gait disturbance [Unknown]
  - Burning sensation [Unknown]
  - Off label use [Unknown]
  - Musculoskeletal stiffness [Unknown]
  - Arthralgia [Unknown]
  - Paraesthesia [Unknown]
  - Joint stiffness [Unknown]
  - Limb discomfort [Recovering/Resolving]
  - Sleep disorder due to general medical condition, insomnia type [Recovered/Resolved]
  - Anxiety [Unknown]
  - Neuropathy peripheral [Unknown]
  - Pain of skin [Unknown]
  - Formication [Unknown]

NARRATIVE: CASE EVENT DATE: 2017
